FAERS Safety Report 12784194 (Version 2)
Quarter: 2016Q4

REPORT INFORMATION
  Report Type: Spontaneous
  Country: US (occurrence: US)
  Receive Date: 20160927
  Receipt Date: 20161024
  Transmission Date: 20170207
  Serious: No
  Sender: FDA-Public Use
  Company Number: US-PFIZER INC-2016448740

PATIENT
  Age: 73 Year
  Sex: Male
  Weight: 151 kg

DRUGS (14)
  1. CLONAZEPAM. [Concomitant]
     Active Substance: CLONAZEPAM
     Indication: NERVOUSNESS
     Dosage: 0.5 MG, 2X/DAY
     Route: 048
  2. LASIX [Concomitant]
     Active Substance: FUROSEMIDE
     Indication: DIURETIC THERAPY
     Dosage: 40 MG, 1X/DAY
     Route: 048
  3. ALDACTONE [Concomitant]
     Active Substance: SPIRONOLACTONE
     Dosage: 25 MG, 1X/DAY
     Route: 048
  4. XARELTO [Concomitant]
     Active Substance: RIVAROXABAN
     Indication: CARDIAC DISORDER
     Dosage: 15 MG, 1X/DAY
  5. ATORVASTATIN [Concomitant]
     Active Substance: ATORVASTATIN
     Dosage: 20 MG, 1X/DAY AT NIGHT
  6. NOVOLIN [Concomitant]
     Active Substance: INSULIN HUMAN
     Indication: DIABETES MELLITUS
     Dosage: 70/30/90 UNITS AM, 70 UNITS PM
  7. NITROSTAT [Concomitant]
     Active Substance: NITROGLYCERIN
     Indication: CHEST PAIN
     Dosage: 0.4 MG, UNK
     Route: 060
  8. SYMBICORT [Concomitant]
     Active Substance: BUDESONIDE\FORMOTEROL FUMARATE DIHYDRATE
     Dosage: 160/4.5 UG, 2 PUFFS BID
  9. SUTENT [Suspect]
     Active Substance: SUNITINIB MALATE
     Indication: RENAL CELL CARCINOMA STAGE IV
     Dosage: 50 MG, CYCLIC, (2 WEEKS ON 1 WEEK OFF)
     Route: 048
     Dates: start: 20160901
  10. ISRADIPINE. [Concomitant]
     Active Substance: ISRADIPINE
     Indication: CARDIAC DISORDER
     Dosage: 2.5 MG, 2X/DAY
     Route: 048
  11. BAYER ASPIRIN [Concomitant]
     Active Substance: ASPIRIN
     Dosage: 81 MG, 1X/DAY
  12. COREG [Concomitant]
     Active Substance: CARVEDILOL
     Dosage: 25 MG, 2X/DAY
     Route: 048
  13. PRAVASTATIN. [Concomitant]
     Active Substance: PRAVASTATIN
     Dosage: 40 MG, 1X/DAY
     Route: 048
  14. NOVOLOG MIX 70/30 [Concomitant]
     Active Substance: INSULIN ASPART
     Indication: DIABETES MELLITUS
     Dosage: 21 UNITS LUNCH, 24 UNITS DINNER

REACTIONS (1)
  - Diarrhoea [Recovered/Resolved]

NARRATIVE: CASE EVENT DATE: 201609
